FAERS Safety Report 9729094 (Version 1)
Quarter: 2013Q4

REPORT INFORMATION
  Report Type: Report from Study
  Country: BR (occurrence: BR)
  Receive Date: 20131204
  Receipt Date: 20131204
  Transmission Date: 20140711
  Serious: Yes (Death)
  Sender: FDA-Public Use
  Company Number: PHHY2013BR136922

PATIENT
  Age: 98 Year
  Sex: Male
  Weight: 75 kg

DRUGS (6)
  1. NEOTIAPIM [Suspect]
     Indication: SLEEP DISORDER
     Dosage: 2 DF, QD IN NIGHT
     Route: 048
  2. NEOTIAPIM [Suspect]
     Indication: AGITATION
  3. SUSTRATE [Concomitant]
     Indication: HYPERTENSION
  4. METFORMIN [Concomitant]
     Indication: DIABETES MELLITUS
  5. GLIBENCLAMIDE [Concomitant]
     Indication: DIABETES MELLITUS
  6. AAS [Concomitant]
     Indication: ANTICOAGULANT THERAPY

REACTIONS (1)
  - Acute myocardial infarction [Fatal]
